FAERS Safety Report 16192106 (Version 1)
Quarter: 2019Q2

REPORT INFORMATION
  Report Type: Spontaneous
  Country: US (occurrence: US)
  Receive Date: 20190412
  Receipt Date: 20190412
  Transmission Date: 20190711
  Serious: No
  Sender: FDA-Public Use
  Company Number: US-TEVA-2019-US-1037338

PATIENT
  Sex: Female

DRUGS (1)
  1. BUPROPION WATSON [Suspect]
     Active Substance: BUPROPION
     Indication: MAJOR DEPRESSION
     Route: 065
     Dates: start: 2018

REACTIONS (2)
  - Depression [Recovered/Resolved]
  - Product formulation issue [Unknown]
